FAERS Safety Report 5205975-9 (Version None)
Quarter: 2007Q1

REPORT INFORMATION
  Report Type: 
  Country: None (occurrence: None)
  Receive Date: 20070111
  Receipt Date: 20070105
  Transmission Date: 20070707
  Serious: Yes (Death)
  Sender: FDA-Public Use
  Company Number: FR-JNJFOC-20061200449

PATIENT
  Sex: Male
  Weight: 80 kg

DRUGS (9)
  1. DURAGESIC-100 [Suspect]
     Indication: CANCER PAIN
     Route: 062
  2. ACTISKENAN [Concomitant]
     Route: 065
  3. LYTOS [Concomitant]
     Route: 065
  4. CORTANCYL [Concomitant]
     Route: 065
  5. COUMADIN [Concomitant]
     Route: 065
  6. XANAX [Concomitant]
     Route: 065
  7. OMEPRAZOLE [Concomitant]
     Route: 065
  8. ZOPICLONE [Concomitant]
     Route: 065
  9. AUGMENTIN '125' [Concomitant]
     Route: 065

REACTIONS (2)
  - DISEASE PROGRESSION [None]
  - DRUG INEFFECTIVE [None]
